FAERS Safety Report 4906172-4 (Version None)
Quarter: 2006Q1

REPORT INFORMATION
  Report Type: 
  Country: None (occurrence: None)
  Receive Date: 20060209
  Receipt Date: 20060202
  Transmission Date: 20060701
  Serious: Yes (Other)
  Sender: FDA-Public Use
  Company Number: US-BRISTOL-MYERS SQUIBB COMPANY-13271325

PATIENT

DRUGS (2)
  1. ERBITUX [Suspect]
     Indication: COLORECTAL CANCER METASTATIC
     Route: 042
  2. BENADRYL [Concomitant]
     Indication: PREMEDICATION
     Route: 048

REACTIONS (1)
  - GRAND MAL CONVULSION [None]
